FAERS Safety Report 10655487 (Version 1)
Quarter: 2014Q4

REPORT INFORMATION
  Report Type: Spontaneous
  Country: US (occurrence: None)
  Receive Date: 20141205
  Receipt Date: 20141205
  Transmission Date: 20150529
  Serious: Yes (Other)
  Sender: FDA-Public Use
  Company Number: USA-2014101473

PATIENT
  Age: 40 Year
  Sex: Female
  Weight: 88.91 kg

DRUGS (10)
  1. TRAMADOL [Concomitant]
     Active Substance: TRAMADOL
  2. LORAZEPAM. [Concomitant]
     Active Substance: LORAZEPAM
  3. CARFILZOMIB [Concomitant]
     Active Substance: CARFILZOMIB
  4. ONDANSETRON [Concomitant]
     Active Substance: ONDANSETRON
  5. HYDROCODONE/APAP (PARACETAMOL, HYDROCODONE BITARTRATE) [Concomitant]
  6. POMALYST [Suspect]
     Active Substance: POMALIDOMIDE
     Indication: PLASMA CELL MYELOMA
     Dosage: 21 IN 28 D
     Route: 048
     Dates: start: 20140716
  7. FILGRASTIM [Concomitant]
     Active Substance: FILGRASTIM
  8. ACYCLOVIR (ACICLOVIR) (ACICLOVIR) [Concomitant]
     Active Substance: ACYCLOVIR
  9. FAMOTIDINE. [Concomitant]
     Active Substance: FAMOTIDINE
  10. PAROXETINE [Concomitant]
     Active Substance: PAROXETINE\PAROXETINE HYDROCHLORIDE

REACTIONS (1)
  - Neutrophil count decreased [None]

NARRATIVE: CASE EVENT DATE: 20140928
